FAERS Safety Report 10506756 (Version 5)
Quarter: 2015Q3

REPORT INFORMATION
  Report Type: Report from Study
  Country: US (occurrence: US)
  Receive Date: 20141009
  Receipt Date: 20150831
  Transmission Date: 20151125
  Serious: Yes (Hospitalization, Other)
  Sender: FDA-Public Use
  Company Number: US-UCBSA-2014013250

PATIENT
  Age: 71 Year
  Sex: Male
  Weight: 89.8 kg

DRUGS (35)
  1. AMLODIPINE BESYLATE. [Concomitant]
     Active Substance: AMLODIPINE BESYLATE
     Indication: HYPERTENSION
     Dosage: 10 MG, ONCE DAILY (QD)
     Route: 048
  2. VITAMIN B12 [Concomitant]
     Active Substance: CYANOCOBALAMIN
     Indication: SUPPLEMENTATION THERAPY
     Dosage: 2000 MG, ONCE DAILY (QD)
     Route: 048
     Dates: start: 2004
  3. LUMIGAN [Concomitant]
     Active Substance: BIMATOPROST
     Indication: UNEVALUABLE EVENT
     Dosage: 5 ML, ONCE DAILY (QD)
     Route: 047
     Dates: start: 2013
  4. CLOPIDOGREL BISULFATE. [Concomitant]
     Active Substance: CLOPIDOGREL BISULFATE
     Indication: UNEVALUABLE EVENT
     Dosage: 75 MG, ONCE DAILY (QD)
     Route: 048
     Dates: start: 2011
  5. NITROSTAT [Concomitant]
     Active Substance: NITROGLYCERIN
     Indication: UNEVALUABLE EVENT
     Dosage: 0.4 MG, UNK
     Route: 048
  6. LIPITOR [Concomitant]
     Active Substance: ATORVASTATIN CALCIUM
     Indication: HYPERCHOLESTEROLAEMIA
     Dosage: 20 MG, ONCE DAILY (QD)
     Route: 048
     Dates: start: 20140212
  7. HEPARIN [Concomitant]
     Active Substance: HEPARIN SODIUM
     Indication: PRODUCT USED FOR UNKNOWN INDICATION
     Dosage: UNK
     Dates: start: 20140924
  8. PROTONIX [Concomitant]
     Active Substance: PANTOPRAZOLE SODIUM
     Indication: PRODUCT USED FOR UNKNOWN INDICATION
     Dosage: 40 MG, ONCE DAILY (QD)
     Route: 048
  9. ISOSORBIDE MONONITRATE. [Concomitant]
     Active Substance: ISOSORBIDE MONONITRATE
     Indication: UNEVALUABLE EVENT
     Dosage: 120 MG, ONCE DAILY (QD)
     Route: 048
     Dates: start: 2013
  10. KLOR-CON [Concomitant]
     Active Substance: POTASSIUM CHLORIDE
     Indication: HYPOKALAEMIA
     Dosage: 10 MEQ, ONCE DAILY (QD)
     Route: 048
  11. LISINOPRIL. [Concomitant]
     Active Substance: LISINOPRIL
     Indication: HYPERTENSION
     Dosage: 10 MG, ONCE DAILY (QD)
     Route: 048
  12. TRAMADOL. [Concomitant]
     Active Substance: TRAMADOL
     Indication: UNEVALUABLE EVENT
     Dosage: 50 MG, AS NEEDED (PRN)
     Route: 048
     Dates: start: 201401
  13. ATORVASTATIN [Concomitant]
     Active Substance: ATORVASTATIN
     Indication: HYPERCHOLESTEROLAEMIA
     Dosage: 20 MG, ONCE DAILY (QD)
     Route: 048
     Dates: start: 2004
  14. MORPHINE SULPHATE [Concomitant]
     Active Substance: MORPHINE SULFATE
     Indication: PRODUCT USED FOR UNKNOWN INDICATION
     Dosage: 4 MG, AS NEEDED (PRN) EVERY4 HOURS
     Route: 042
     Dates: start: 2014
  15. CERTOLIZUMAB PEGOL RA [Suspect]
     Active Substance: CERTOLIZUMAB PEGOL
     Indication: RHEUMATOID ARTHRITIS
     Dosage: 200 MG, UNK
     Route: 058
     Dates: start: 20140102
  16. FISH OIL [Concomitant]
     Active Substance: FISH OIL
     Indication: SUPPLEMENTATION THERAPY
     Dosage: BID
     Dates: start: 2004
  17. ACETAMINOPHEN. [Concomitant]
     Active Substance: ACETAMINOPHEN
     Indication: PRODUCT USED FOR UNKNOWN INDICATION
     Dosage: 650 MG, EVERY 4 HOURS AS NEEDED (PRN)
     Route: 048
     Dates: start: 2014
  18. CENTRUM [Concomitant]
     Active Substance: VITAMINS
     Indication: UNEVALUABLE EVENT
     Dosage: 1 DF, ONCE DAILY (QD)
     Route: 048
     Dates: start: 201405
  19. NORCO [Concomitant]
     Active Substance: ACETAMINOPHEN\HYDROCODONE BITARTRATE
     Indication: PRODUCT USED FOR UNKNOWN INDICATION
     Dosage: 1 DF, EVERY 6 HOURS AS NEEDED (PRN)
     Route: 048
     Dates: start: 2014
  20. ACETAMINOPHEN. [Concomitant]
     Active Substance: ACETAMINOPHEN
     Dosage: 325 MG EVERY 4 HOURS, AS NEEDED (PRN)
     Route: 048
     Dates: start: 201409
  21. HYDRALAZINE [Concomitant]
     Active Substance: HYDRALAZINE HYDROCHLORIDE
     Indication: PRODUCT USED FOR UNKNOWN INDICATION
     Dosage: 10 MG, EVERY 4 HOURS AS NEEDED (PRN)
     Route: 042
     Dates: start: 2014
  22. AZOPT [Concomitant]
     Active Substance: BRINZOLAMIDE
     Indication: UNEVALUABLE EVENT
     Dosage: 10 ML, 2X/DAY (BID)
     Route: 047
     Dates: start: 2013
  23. METHOTREXATE [Concomitant]
     Active Substance: METHOTREXATE
     Indication: RHEUMATOID ARTHRITIS
     Dosage: 2.5 MG, WEEKLY (QW)
     Route: 048
     Dates: start: 2009
  24. SODIUM CHLORIDE. [Concomitant]
     Active Substance: SODIUM CHLORIDE
     Indication: PRODUCT USED FOR UNKNOWN INDICATION
     Dosage: 10 ML, AS NEEDED (PRN)
     Route: 042
     Dates: start: 2014
  25. VANCOMYCIN [Concomitant]
     Active Substance: VANCOMYCIN
     Indication: PRODUCT USED FOR UNKNOWN INDICATION
     Dosage: 500 MG, 100ML/HOUR
     Route: 042
     Dates: start: 2014
  26. FOLIC ACID. [Concomitant]
     Active Substance: FOLIC ACID
     Indication: RHEUMATOID ARTHRITIS
     Dosage: 1 MG, ONCE DAILY (QD)
     Route: 048
     Dates: start: 2009
  27. METHYLPREDNISOLONE. [Concomitant]
     Active Substance: METHYLPREDNISOLONE
     Indication: RHEUMATOID ARTHRITIS
     Dosage: 2 MG, ONCE DAILY (QD)
     Route: 048
     Dates: start: 2009
  28. FUROSEMIDE. [Concomitant]
     Active Substance: FUROSEMIDE
     Indication: HYPERTENSION
     Dosage: 40 MG, ONCE DAILY (QD)
     Route: 048
  29. GARLIC. [Concomitant]
     Active Substance: GARLIC
     Indication: SUPPLEMENTATION THERAPY
     Dosage: 1000 MG, 2X/DAY (BID)
     Dates: start: 2004
  30. LECITHIN [Concomitant]
     Active Substance: LECITHIN
     Indication: SUPPLEMENTATION THERAPY
     Dosage: 1200 MG, ONCE DAILY (QD)
     Route: 048
     Dates: start: 2004
  31. CARVEDILOL. [Concomitant]
     Active Substance: CARVEDILOL
     Indication: UNEVALUABLE EVENT
     Dosage: 6.25 MG, 2X/DAY (BID)
     Route: 048
     Dates: start: 201310
  32. ONDANSETRON [Concomitant]
     Active Substance: ONDANSETRON
     Indication: PRODUCT USED FOR UNKNOWN INDICATION
     Dosage: 4 MG, AS NEEDED (PRN); EVERY 8 HOURS
     Route: 042
     Dates: start: 2014
  33. NITROGLYCERIN. [Concomitant]
     Active Substance: NITROGLYCERIN
     Indication: UNEVALUABLE EVENT
     Dosage: 0.4 MG, ONCE DAILY (QD)
     Route: 060
     Dates: start: 2013
  34. LANSOPRAZOLE. [Concomitant]
     Active Substance: LANSOPRAZOLE
     Indication: PRODUCT USED FOR UNKNOWN INDICATION
     Dosage: 1 DF, UNK
     Route: 048
  35. ACETAMINOPHEN AND CODEINE [Concomitant]
     Active Substance: ACETAMINOPHEN\CODEINE PHOSPHATE
     Indication: PRODUCT USED FOR UNKNOWN INDICATION
     Dosage: 1 DF, EVERY 4 HOURS AS NEEDED
     Route: 048
     Dates: start: 2014

REACTIONS (4)
  - Pyrexia [Recovered/Resolved]
  - Hypertension [Recovered/Resolved]
  - Atrial fibrillation [Recovered/Resolved]
  - Infection [Recovered/Resolved]

NARRATIVE: CASE EVENT DATE: 20140922
